FAERS Safety Report 7226003-X (Version None)
Quarter: 2011Q1

REPORT INFORMATION
  Report Type: 
  Country: None (occurrence: None)
  Receive Date: 20110113
  Receipt Date: 20110106
  Transmission Date: 20110831
  Serious: Yes (Hospitalization, Other)
  Sender: FDA-Public Use
  Company Number: US-US-EMD SERONO, INC.-7010304

PATIENT
  Sex: Female
  Weight: 54 kg

DRUGS (3)
  1. REBIF [Suspect]
     Indication: MULTIPLE SCLEROSIS
     Route: 058
     Dates: start: 20040702
  2. ASPIRIN [Concomitant]
     Indication: HEART RATE IRREGULAR
  3. ATENOLOL [Concomitant]
     Indication: HEART RATE IRREGULAR

REACTIONS (11)
  - INFLUENZA LIKE ILLNESS [None]
  - ARRHYTHMIA [None]
  - DIVERTICULITIS [None]
  - RED BLOOD CELL COUNT DECREASED [None]
  - INJECTION SITE PAIN [None]
  - DIVERTICULUM [None]
  - INJECTION SITE ERYTHEMA [None]
  - WHITE BLOOD CELL COUNT DECREASED [None]
  - INJECTION SITE MASS [None]
  - WEIGHT INCREASED [None]
  - BLOOD SODIUM DECREASED [None]
